FAERS Safety Report 4682982-6 (Version None)
Quarter: 2005Q2

REPORT INFORMATION
  Report Type: 
  Country: None (occurrence: None)
  Receive Date: 20050602
  Receipt Date: 20050329
  Transmission Date: 20051028
  Serious: No
  Sender: FDA-Public Use
  Company Number: USA050393791

PATIENT
  Age: 70 Year
  Sex: Female
  Weight: 71 kg

DRUGS (1)
  1. CYMBALTA [Suspect]
     Indication: DEPRESSION
     Dosage: 60 MG DAY
     Dates: start: 20050301

REACTIONS (7)
  - ABDOMINAL PAIN UPPER [None]
  - DYSGEUSIA [None]
  - FEELING ABNORMAL [None]
  - FOOD AVERSION [None]
  - HEADACHE [None]
  - PARAESTHESIA ORAL [None]
  - SOMNOLENCE [None]
